FAERS Safety Report 8835493 (Version 1)
Quarter: 2012Q4

REPORT INFORMATION
  Report Type: 
  Country: SE (occurrence: SE)
  Receive Date: 20121011
  Receipt Date: 20121011
  Transmission Date: 20130627
  Serious: Yes (Other)
  Sender: FDA-Public Use
  Company Number: SE-ASTRAZENECA-2012SE76195

PATIENT
  Sex: Female

DRUGS (6)
  1. PROPOFOL [Suspect]
     Indication: ANAESTHESIA
     Dosage: 4.25 mg
     Route: 042
  2. ALFENTANIL [Suspect]
     Indication: ANAESTHESIA
     Dosage: 0.0375 mg
     Route: 042
  3. PARACETAMOL [Suspect]
  4. DICLOFENAC [Suspect]
  5. GLUCOSE [Suspect]
     Dosage: 25 mg/ml 100 ml/h
     Route: 042
  6. UNSPECIFIED INGREDIENT [Suspect]
     Indication: LOCAL ANAESTHESIA

REACTIONS (3)
  - Apnoea [Recovered/Resolved]
  - Oxygen saturation decreased [Unknown]
  - Sedation [Unknown]
